FAERS Safety Report 8409578-4 (Version None)
Quarter: 2012Q2

REPORT INFORMATION
  Report Type: 
  Country: None (occurrence: None)
  Receive Date: 20120529
  Receipt Date: 20120511
  Transmission Date: 20120825
  Serious: Yes (Other)
  Sender: FDA-Public Use
  Company Number: 2011P1008666

PATIENT
  Age: 55 Year
  Sex: Female
  Weight: 77.1115 kg

DRUGS (5)
  1. MONOPRIL [Concomitant]
  2. BISMUTH SUBSALICYLATE [Suspect]
     Indication: ABDOMINAL PAIN UPPER
  3. TERCONAZOLE [Suspect]
     Indication: VULVOVAGINAL MYCOTIC INFECTION
     Dosage: APPLICATOR;QHS;VAG
     Route: 067
     Dates: start: 20110801, end: 20110801
  4. PRILOSEC [Concomitant]
  5. XANAX [Concomitant]

REACTIONS (10)
  - BURNS SECOND DEGREE [None]
  - SKIN DISORDER [None]
  - RASH [None]
  - SKIN TIGHTNESS [None]
  - SWELLING FACE [None]
  - ERYTHEMA [None]
  - PRURITUS [None]
  - COUGH [None]
  - SKIN INDURATION [None]
  - LOCAL SWELLING [None]
